FAERS Safety Report 4319102-3 (Version None)
Quarter: 2004Q1

REPORT INFORMATION
  Report Type: 
  Country: None (occurrence: None)
  Receive Date: 20040318
  Receipt Date: 20040318
  Transmission Date: 20041129
  Serious: No
  Sender: FDA-Public Use
  Company Number: None

PATIENT
  Age: 56 Year
  Sex: Male
  Weight: 59.8748 kg

DRUGS (2)
  1. NEVIRAPINE 200 MG BOEHRINGER [Suspect]
     Indication: HIV INFECTION
     Dosage: 200 MG BID ORAL
     Route: 048
     Dates: start: 20011001, end: 20040224
  2. COMBIVIR [Suspect]
     Indication: HIV INFECTION
     Dosage: 200 MG BID ORAL
     Route: 048
     Dates: start: 20011001, end: 20040224

REACTIONS (3)
  - ABDOMINAL PAIN [None]
  - LIVER FUNCTION TEST ABNORMAL [None]
  - NAUSEA [None]
